FAERS Safety Report 17746437 (Version 5)
Quarter: 2020Q4

REPORT INFORMATION
  Report Type: Report from Study
  Country: DE (occurrence: DE)
  Receive Date: 20200505
  Receipt Date: 20201212
  Transmission Date: 20210113
  Serious: Yes (Hospitalization, Other)
  Sender: FDA-Public Use
  Company Number: DE-SHIRE-DE202014985

PATIENT

DRUGS (20)
  1. TEDUGLUTIDE [Suspect]
     Active Substance: TEDUGLUTIDE
     Indication: SHORT-BOWEL SYNDROME
     Dosage: 0.26 MILLILITER, 1X/DAY:QD
     Route: 058
     Dates: start: 20200309, end: 20200312
  2. TEDUGLUTIDE [Suspect]
     Active Substance: TEDUGLUTIDE
     Dosage: 0.26 MILLILITER, 1X/DAY:QD
     Route: 058
     Dates: start: 20200516
  3. TEDUGLUTIDE [Suspect]
     Active Substance: TEDUGLUTIDE
     Dosage: 2.8 MILLIGRAM (0.05 MG/KG DAILY DOSE, 7 DOSES PER WEEK), OTHER
     Route: 065
     Dates: start: 20200309, end: 20200320
  4. TEDUGLUTIDE [Suspect]
     Active Substance: TEDUGLUTIDE
     Dosage: 2.8 MILLIGRAM (0.05 MG/KG DAILY DOSE, 7 DOSES PER WEEK), OTHER
     Route: 065
     Dates: start: 20200423
  5. TEDUGLUTIDE [Suspect]
     Active Substance: TEDUGLUTIDE
     Dosage: 0.26 MILLILITER, 1X/DAY:QD
     Route: 058
     Dates: start: 20200516
  6. TEDUGLUTIDE [Suspect]
     Active Substance: TEDUGLUTIDE
     Dosage: 2.8 MILLIGRAM (0.05 MG/KG DAILY DOSE, 7 DOSES PER WEEK), OTHER
     Route: 065
     Dates: start: 20200309, end: 20200320
  7. TEDUGLUTIDE [Suspect]
     Active Substance: TEDUGLUTIDE
     Dosage: 2.8 MILLIGRAM (0.05 MG/KG DAILY DOSE, 7 DOSES PER WEEK), OTHER
     Route: 065
     Dates: start: 20200423
  8. ZOLPIDEM [Concomitant]
     Active Substance: ZOLPIDEM TARTRATE
     Indication: PRODUCT USED FOR UNKNOWN INDICATION
  9. CETIRIZIN [Concomitant]
     Active Substance: CETIRIZINE HYDROCHLORIDE
     Indication: ANTIALLERGIC THERAPY
  10. TEDUGLUTIDE [Suspect]
     Active Substance: TEDUGLUTIDE
     Indication: SHORT-BOWEL SYNDROME
     Dosage: 0.26 MILLILITER, 1X/DAY:QD
     Route: 058
     Dates: start: 20200309, end: 20200312
  11. TEDUGLUTIDE [Suspect]
     Active Substance: TEDUGLUTIDE
     Indication: SHORT-BOWEL SYNDROME
     Dosage: 0.26 MILLILITER, 1X/DAY:QD
     Route: 058
     Dates: start: 20200309, end: 20200312
  12. TEDUGLUTIDE [Suspect]
     Active Substance: TEDUGLUTIDE
     Dosage: 2.8 MILLIGRAM (0.05 MG/KG DAILY DOSE, 7 DOSES PER WEEK), OTHER
     Route: 065
     Dates: start: 20200423
  13. INFLIXIMAB [Concomitant]
     Active Substance: INFLIXIMAB
     Indication: CROHN^S DISEASE
  14. ZINC. [Concomitant]
     Active Substance: ZINC
     Indication: ZINC DEFICIENCY
  15. TEDUGLUTIDE [Suspect]
     Active Substance: TEDUGLUTIDE
     Indication: SHORT-BOWEL SYNDROME
     Dosage: 0.26 MILLILITER, 1X/DAY:QD
     Route: 058
     Dates: start: 20200309, end: 20200312
  16. TEDUGLUTIDE [Suspect]
     Active Substance: TEDUGLUTIDE
     Dosage: 0.26 MILLILITER, 1X/DAY:QD
     Route: 058
     Dates: start: 20200516
  17. TEDUGLUTIDE [Suspect]
     Active Substance: TEDUGLUTIDE
     Dosage: 2.8 MILLIGRAM (0.05 MG/KG DAILY DOSE, 7 DOSES PER WEEK), OTHER
     Route: 065
     Dates: start: 20200423
  18. TEDUGLUTIDE [Suspect]
     Active Substance: TEDUGLUTIDE
     Dosage: 0.26 MILLILITER, 1X/DAY:QD
     Route: 058
     Dates: start: 20200516
  19. TEDUGLUTIDE [Suspect]
     Active Substance: TEDUGLUTIDE
     Dosage: 2.8 MILLIGRAM (0.05 MG/KG DAILY DOSE, 7 DOSES PER WEEK), OTHER
     Route: 065
     Dates: start: 20200309, end: 20200320
  20. TEDUGLUTIDE [Suspect]
     Active Substance: TEDUGLUTIDE
     Dosage: 2.8 MILLIGRAM (0.05 MG/KG DAILY DOSE, 7 DOSES PER WEEK), OTHER
     Route: 065
     Dates: start: 20200309, end: 20200320

REACTIONS (21)
  - Arthralgia [Unknown]
  - Device related infection [Recovered/Resolved]
  - Abdominal pain upper [Unknown]
  - Cholecystitis [Recovered/Resolved]
  - Impaired healing [Unknown]
  - Catheter site pain [Recovered/Resolved]
  - Disturbance in attention [Unknown]
  - Liver disorder [Unknown]
  - Decreased appetite [Not Recovered/Not Resolved]
  - Muscle spasms [Unknown]
  - Mood altered [Unknown]
  - Breast pain [Unknown]
  - Headache [Unknown]
  - Splenomegaly [Unknown]
  - Granuloma [Unknown]
  - Iron deficiency [Not Recovered/Not Resolved]
  - Fatigue [Unknown]
  - Stoma site inflammation [Unknown]
  - Chest pain [Recovered/Resolved]
  - Flank pain [Recovered/Resolved]
  - Hepatosplenomegaly [Unknown]

NARRATIVE: CASE EVENT DATE: 20200306
